FAERS Safety Report 20642531 (Version 1)
Quarter: 2022Q1

REPORT INFORMATION
  Report Type: Spontaneous
  Country: US (occurrence: US)
  Receive Date: 20220328
  Receipt Date: 20220328
  Transmission Date: 20220423
  Serious: No
  Sender: FDA-Public Use
  Company Number: US-BAUSCH-BL-2022-007422

PATIENT
  Age: 35 Year
  Sex: Female
  Weight: 74.910 kg

DRUGS (1)
  1. WELLBUTRIN XL [Suspect]
     Active Substance: BUPROPION HYDROCHLORIDE
     Indication: Perinatal depression
     Route: 048
     Dates: start: 202203

REACTIONS (1)
  - Lactation puerperal increased [Unknown]

NARRATIVE: CASE EVENT DATE: 20220301
